FAERS Safety Report 18900850 (Version 1)
Quarter: 2021Q1

REPORT INFORMATION
  Report Type: Spontaneous
  Country: FR (occurrence: FR)
  Receive Date: 20210217
  Receipt Date: 20210217
  Transmission Date: 20210420
  Serious: Yes (Hospitalization, Other)
  Sender: FDA-Public Use
  Company Number: FR-ACCORD-217432

PATIENT
  Age: 42 Year
  Sex: Female
  Weight: 58 kg

DRUGS (3)
  1. SERTRALINE [Suspect]
     Active Substance: SERTRALINE HYDROCHLORIDE
     Dosage: MAXIMUM SUSPECTED DOSE
     Route: 048
     Dates: start: 20201230, end: 20201230
  2. ALIMEMAZINE [Suspect]
     Active Substance: TRIMEPRAZINE
     Dosage: MAXIMUM SUSPECTED DOSE
     Route: 048
     Dates: start: 20201230, end: 20201230
  3. LAMOTRIGINE. [Suspect]
     Active Substance: LAMOTRIGINE
     Dosage: MAXIMUM SUSPECTED DOSE
     Route: 048
     Dates: start: 20201230, end: 20201230

REACTIONS (2)
  - Suicide attempt [Unknown]
  - Hypercapnic coma [Recovered/Resolved]

NARRATIVE: CASE EVENT DATE: 20201230
